FAERS Safety Report 8364346-7 (Version None)
Quarter: 2012Q2

REPORT INFORMATION
  Report Type: 
  Country: None (occurrence: None)
  Receive Date: 20120516
  Receipt Date: 20120507
  Transmission Date: 20120825
  Serious: Yes (Other)
  Sender: FDA-Public Use
  Company Number: CN-ASTRAZENECA-2012SE27973

PATIENT
  Age: 24 Year
  Sex: Female
  Weight: 55 kg

DRUGS (2)
  1. PROPOFOL [Suspect]
     Indication: ANAESTHESIA
     Route: 042
  2. LORNOXICAM [Concomitant]
     Route: 030

REACTIONS (3)
  - OXYGEN SATURATION DECREASED [None]
  - CHEST DISCOMFORT [None]
  - SNORING [None]
